FAERS Safety Report 20507442 (Version 1)
Quarter: 2022Q1

REPORT INFORMATION
  Report Type: Spontaneous
  Country: US (occurrence: US)
  Receive Date: 20220223
  Receipt Date: 20220223
  Transmission Date: 20220423
  Serious: Yes (Other)
  Sender: FDA-Public Use
  Company Number: US-TAKEDA-2022TUS012219

PATIENT
  Age: 28 Year
  Sex: Male

DRUGS (3)
  1. TRINTELLIX [Suspect]
     Active Substance: VORTIOXETINE HYDROBROMIDE
     Indication: Major depression
     Dosage: 5 MILLIGRAM
     Route: 065
     Dates: start: 202002
  2. TRINTELLIX [Suspect]
     Active Substance: VORTIOXETINE HYDROBROMIDE
     Dosage: 5 MILLIGRAM
     Route: 065
     Dates: start: 20211215
  3. LAMICTAL [Concomitant]
     Active Substance: LAMOTRIGINE
     Indication: Bipolar I disorder
     Dosage: UNK
     Route: 065

REACTIONS (1)
  - Serotonin syndrome [Unknown]

NARRATIVE: CASE EVENT DATE: 20220101
